FAERS Safety Report 5689384-4 (Version None)
Quarter: 2008Q1

REPORT INFORMATION
  Report Type: 
  Country: None (occurrence: None)
  Receive Date: 20080331
  Receipt Date: 20080319
  Transmission Date: 20080703
  Serious: Yes (Disabling, Other)
  Sender: FDA-Public Use
  Company Number: US-PFIZER INC-2007107277

PATIENT
  Sex: Female
  Weight: 70.3 kg

DRUGS (6)
  1. CHANTIX [Suspect]
     Indication: CHRONIC OBSTRUCTIVE PULMONARY DISEASE
     Route: 048
  2. TOPAMAX [Suspect]
     Indication: WEIGHT DECREASED
  3. TOPAMAX [Suspect]
     Indication: OBESITY
  4. VYTORIN [Concomitant]
  5. PROVERA [Concomitant]
  6. ALLEGRA [Concomitant]

REACTIONS (3)
  - GINGIVAL OPERATION [None]
  - GINGIVITIS [None]
  - STOMATITIS [None]
